FAERS Safety Report 10537497 (Version 1)
Quarter: 2014Q4

REPORT INFORMATION
  Report Type: Spontaneous
  Country: US (occurrence: None)
  Receive Date: 20141022
  Receipt Date: 20141022
  Transmission Date: 20150529
  Serious: Yes (Hospitalization)
  Sender: FDA-Public Use
  Company Number: None

PATIENT
  Age: 71 Year
  Sex: Female
  Weight: 77.9 kg

DRUGS (5)
  1. 5-FLUOROURACIL [Suspect]
     Active Substance: FLUOROURACIL
  2. LEUCOVORIN CALCIUM. [Suspect]
     Active Substance: LEUCOVORIN CALCIUM
  3. CAMPTOSAR [Suspect]
     Active Substance: IRINOTECAN HYDROCHLORIDE
  4. XELODA [Suspect]
     Active Substance: CAPECITABINE
  5. ELOXATIN [Suspect]
     Active Substance: OXALIPLATIN

REACTIONS (7)
  - Clostridium difficile infection [None]
  - Vomiting [None]
  - Hyponatraemia [None]
  - Nausea [None]
  - Gastritis [None]
  - Blood potassium decreased [None]
  - Impaired gastric emptying [None]

NARRATIVE: CASE EVENT DATE: 20140903
